FAERS Safety Report 6998299-0 (Version None)
Quarter: 2010Q3

REPORT INFORMATION
  Report Type: 
  Country: None (occurrence: None)
  Receive Date: 20100920
  Receipt Date: 20100126
  Transmission Date: 20110219
  Serious: No
  Sender: FDA-Public Use
  Company Number: US-ASTRAZENECA-2009SE30501

PATIENT
  Age: 15183 Day
  Sex: Female
  Weight: 77.1 kg

DRUGS (4)
  1. SEROQUEL XR [Suspect]
     Indication: BIPOLAR DISORDER
     Route: 048
     Dates: start: 20091125, end: 20091101
  2. SEROQUEL XR [Suspect]
     Route: 048
     Dates: start: 20091101
  3. ANTIVIRAL [Concomitant]
  4. ABILIFY [Concomitant]
     Indication: BIPOLAR DISORDER

REACTIONS (4)
  - SEDATION [None]
  - SOMNOLENCE [None]
  - STOMATITIS [None]
  - VIRAL INFECTION [None]
